FAERS Safety Report 6201747-7 (Version None)
Quarter: 2009Q2

REPORT INFORMATION
  Report Type: 
  Country: None (occurrence: None)
  Receive Date: 20090526
  Receipt Date: 20090514
  Transmission Date: 20091009
  Serious: Yes (Hospitalization, Other)
  Sender: FDA-Public Use
  Company Number: US-BAYER-200918871NA

PATIENT
  Age: 74 Year
  Sex: Male
  Weight: 82 kg

DRUGS (7)
  1. ULTRAVIST 150 [Suspect]
     Indication: COMPUTERISED TOMOGRAM ABDOMEN
     Route: 042
     Dates: start: 20090407, end: 20090407
  2. METOPROLOL SUCCINATE [Concomitant]
     Dosage: TOTAL DAILY DOSE: 50 MG
  3. FLECAINIDE ACETATE [Concomitant]
     Dosage: TOTAL DAILY DOSE: 200 MG
  4. COZAAR [Concomitant]
     Dosage: TOTAL DAILY DOSE: 50 MG
  5. PRILOSEC [Concomitant]
     Dosage: TOTAL DAILY DOSE: 20 MG
  6. ASPIRIN [Concomitant]
  7. XANAX [Concomitant]
     Dosage: 3 X A DAY

REACTIONS (14)
  - ANORECTAL DISCOMFORT [None]
  - BLOOD PRESSURE DECREASED [None]
  - BURNING SENSATION [None]
  - DRUG HYPERSENSITIVITY [None]
  - DYSMORPHISM [None]
  - DYSPNOEA [None]
  - ERYTHEMA [None]
  - NAUSEA [None]
  - ORAL DISCOMFORT [None]
  - PRURITUS [None]
  - SWELLING FACE [None]
  - THROAT IRRITATION [None]
  - THROAT TIGHTNESS [None]
  - VISION BLURRED [None]
